FAERS Safety Report 9376281 (Version 4)
Quarter: 2013Q4

REPORT INFORMATION
  Report Type: Spontaneous
  Country: AU (occurrence: AU)
  Receive Date: 20130701
  Receipt Date: 20131112
  Transmission Date: 20140711
  Serious: Yes (Other)
  Sender: FDA-Public Use
  Company Number: AU-AMGEN-AUSSP2013045475

PATIENT
  Age: 81 Year
  Sex: Male
  Weight: 57.2 kg

DRUGS (5)
  1. XGEVA [Suspect]
     Indication: METASTASES TO BONE
     Dosage: 120 MG, Q4WK
     Route: 058
     Dates: start: 20130605
  2. NEXIUM                             /01479302/ [Concomitant]
     Route: 065
  3. ADALAT [Concomitant]
     Route: 065
  4. CALTRATE + VITAMIN D [Concomitant]
     Route: 065
  5. ZOLADEX                            /00732101/ [Concomitant]
     Route: 065

REACTIONS (16)
  - Hernia [Not Recovered/Not Resolved]
  - Metastasis [Not Recovered/Not Resolved]
  - Pain [Recovering/Resolving]
  - Abdominal pain upper [Unknown]
  - Sleep disorder [Not Recovered/Not Resolved]
  - Haematochezia [Not Recovered/Not Resolved]
  - Constipation [Not Recovered/Not Resolved]
  - Dizziness [Not Recovered/Not Resolved]
  - Back pain [Unknown]
  - Dental prosthesis user [Unknown]
  - Oral discomfort [Unknown]
  - Dysgeusia [Not Recovered/Not Resolved]
  - Malaise [Not Recovered/Not Resolved]
  - Decreased appetite [Not Recovered/Not Resolved]
  - Weight decreased [Not Recovered/Not Resolved]
  - Asthenia [Not Recovered/Not Resolved]
